FAERS Safety Report 4846048-4 (Version None)
Quarter: 2005Q4

REPORT INFORMATION
  Report Type: 
  Country: None (occurrence: None)
  Receive Date: 20051130
  Receipt Date: 20051116
  Transmission Date: 20060501
  Serious: Yes (Death, Other)
  Sender: FDA-Public Use
  Company Number: US-2005-023479

PATIENT

DRUGS (3)
  1. CAMPATH [Suspect]
     Indication: ORGAN TRANSPLANT
     Dosage: INTRAVENOUS
     Route: 042
  2. MYCOPHENOLATE MOFETIL (MYCOPHENOLATE MOFETIL) [Suspect]
     Indication: ORGAN TRANSPLANT
  3. DACLIZUMAB (DACLIZUMAB) [Suspect]
     Indication: ORGAN TRANSPLANT

REACTIONS (9)
  - ANAEMIA HAEMOLYTIC AUTOIMMUNE [None]
  - APLASIA PURE RED CELL [None]
  - IDIOPATHIC THROMBOCYTOPENIC PURPURA [None]
  - INFECTION [None]
  - LYMPHOPROLIFERATIVE DISORDER [None]
  - MYOCARDIAL INFARCTION [None]
  - MYOCARDIAL ISCHAEMIA [None]
  - PULMONARY EMBOLISM [None]
  - SEPSIS [None]
